FAERS Safety Report 4620082-1 (Version None)
Quarter: 2005Q1

REPORT INFORMATION
  Report Type: 
  Country: None (occurrence: None)
  Receive Date: 20050322
  Receipt Date: 20050322
  Transmission Date: 20050727
  Serious: No
  Sender: FDA-Public Use
  Company Number: None

PATIENT
  Age: 50 Year
  Sex: Female
  Weight: 89.7 kg

DRUGS (3)
  1. TAXOL [Suspect]
  2. ANGIOMAX [Concomitant]
  3. PLAVIX [Concomitant]

REACTIONS (1)
  - STENT OCCLUSION [None]
